FAERS Safety Report 5327700-3 (Version None)
Quarter: 2007Q2

REPORT INFORMATION
  Report Type: 
  Country: None (occurrence: None)
  Receive Date: 20070517
  Receipt Date: 20070507
  Transmission Date: 20071010
  Serious: Yes (Life-Threatening, Hospitalization, Other)
  Sender: FDA-Public Use
  Company Number: US-MERCK-0705USA01415

PATIENT
  Age: 64 Year
  Sex: Male

DRUGS (3)
  1. ZETIA [Suspect]
     Indication: BLOOD CHOLESTEROL
     Route: 048
     Dates: start: 20060101, end: 20070401
  2. ZETIA [Suspect]
     Route: 048
     Dates: start: 20060101, end: 20060101
  3. ASPIRIN [Concomitant]
     Route: 065

REACTIONS (4)
  - ARTERIOGRAM CORONARY ABNORMAL [None]
  - CHEST PAIN [None]
  - DYSPNOEA [None]
  - INAPPROPRIATE SCHEDULE OF DRUG ADMINISTRATION [None]
